FAERS Safety Report 8124840-0 (Version None)
Quarter: 2012Q1

REPORT INFORMATION
  Report Type: 
  Country: None (occurrence: None)
  Receive Date: 20120209
  Receipt Date: 20120206
  Transmission Date: 20120608
  Serious: Yes (Hospitalization, Other)
  Sender: FDA-Public Use
  Company Number: US-PFIZER INC-2012032657

PATIENT
  Sex: Female
  Weight: 36.281 kg

DRUGS (11)
  1. CHANTIX [Suspect]
     Indication: SMOKING CESSATION THERAPY
     Dosage: 0.5 MG, DAILY
     Route: 048
     Dates: start: 20110901, end: 20110901
  2. LEVOTHYROXINE SODIUM [Interacting]
     Indication: THYROIDECTOMY
     Dosage: 100 G,DAILY
     Dates: start: 19950101
  3. ALBUTEROL SULFATE [Interacting]
     Indication: DYSPNOEA
     Dosage: UNK, 4X/DAY
     Dates: start: 20070101
  4. ADVAIR DISKUS 100/50 [Interacting]
     Indication: DYSPNOEA
     Dosage: 500/50 UG,4X/DAY
     Dates: start: 20070101
  5. HYDROCODONE [Interacting]
     Indication: ARTHRALGIA
     Dosage: UNK, 4X/DAY
     Dates: start: 20110101
  6. LEVOTHYROXINE SODIUM [Interacting]
     Indication: THYROID CANCER
  7. KLONOPIN [Interacting]
     Indication: NERVOUS SYSTEM DISORDER
     Dosage: UNK, 4X/DAY
     Dates: start: 20110101
  8. SINGULAIR [Interacting]
     Indication: DYSPNOEA
     Dosage: UNK, DAILY
     Dates: start: 20080101
  9. NEXIUM [Interacting]
     Indication: ABDOMINAL DISCOMFORT
     Dosage: UNK, DAILY
     Dates: start: 20090101
  10. CHANTIX [Interacting]
     Dosage: 0.5 MG, 2X/DAY
     Route: 048
     Dates: start: 20110901, end: 20110901
  11. IPRATROPIUM BROMIDE AND ALBUTEROL SULFATE [Interacting]
     Indication: DYSPNOEA
     Dosage: UNK, 4X/DAY
     Dates: start: 20060101

REACTIONS (2)
  - DRUG INTERACTION [None]
  - CEREBROVASCULAR ACCIDENT [None]
